FAERS Safety Report 18026231 (Version 2)
Quarter: 2020Q3

REPORT INFORMATION
  Report Type: Spontaneous
  Country: US (occurrence: US)
  Receive Date: 20200715
  Receipt Date: 20200903
  Transmission Date: 20201103
  Serious: No
  Sender: FDA-Public Use
  Company Number: US-009507513-2007USA005465

PATIENT
  Sex: Female
  Weight: 50.79 kg

DRUGS (1)
  1. NEXPLANON [Suspect]
     Active Substance: ETONOGESTREL
     Dosage: 1 ROD IN RIGHT ARM, EVERY 3 YEARS,
     Route: 059
     Dates: start: 2019, end: 2020

REACTIONS (2)
  - Device kink [Recovered/Resolved]
  - No adverse event [Unknown]
